FAERS Safety Report 21734607 (Version 1)
Quarter: 2022Q4

REPORT INFORMATION
  Report Type: Report from Study
  Country: US (occurrence: US)
  Receive Date: 20221215
  Receipt Date: 20221215
  Transmission Date: 20230112
  Serious: No
  Sender: FDA-Public Use
  Company Number: US-ABBVIE-4199093

PATIENT
  Sex: Female

DRUGS (1)
  1. HUMIRA [Suspect]
     Active Substance: ADALIMUMAB
     Indication: Product used for unknown indication
     Dosage: 40 MILLIGRAM CF
     Route: 058

REACTIONS (3)
  - COVID-19 [Unknown]
  - Rheumatoid arthritis [Recovering/Resolving]
  - Inflammatory marker increased [Not Recovered/Not Resolved]
